FAERS Safety Report 11247940 (Version 1)
Quarter: 2015Q2

REPORT INFORMATION
  Report Type: Report from Study
  Country: US (occurrence: None)
  Receive Date: 20150617
  Receipt Date: 20150617
  Transmission Date: 20150821
  Serious: No
  Sender: FDA-Public Use
  Company Number: 2014TASUS000489

PATIENT
  Age: 75 Year
  Sex: Female
  Weight: 57.1 kg

DRUGS (14)
  1. CALCIUM (CALCIUM CARBONATE) [Concomitant]
  2. HETLIOZ [Suspect]
     Active Substance: TASIMELTEON
     Indication: CIRCADIAN RHYTHM SLEEP DISORDER
     Dosage: 20 MG, QD AT 9PM, ORAL
     Route: 048
     Dates: start: 201408, end: 20140826
  3. VITAMIN B (VITAMIN B COMPLEX) [Concomitant]
  4. PREMARIN [Concomitant]
     Active Substance: ESTROGENS, CONJUGATED
  5. POTASSIUM (POTASSIUM BICARBONATE, POTASSIUM CHLORIDE) [Concomitant]
  6. BACLOFEN. [Concomitant]
     Active Substance: BACLOFEN
  7. LIBRAX (CHLORDIAZEPOXIDE, CLIDINIUM BROMIDE) [Concomitant]
  8. CLONAZEPAM. [Concomitant]
     Active Substance: CLONAZEPAM
  9. VITAMIN D (COLECALCIFEROL) [Concomitant]
  10. CEPHALEXIN (CEFALEXIN MONOHYDRATE) [Concomitant]
  11. MAGNESIUM [Concomitant]
     Active Substance: MAGNESIUM
  12. ZOLPIDEM TARTRATE. [Concomitant]
     Active Substance: ZOLPIDEM TARTRATE
  13. PROAIR HFA [Concomitant]
     Active Substance: ALBUTEROL SULFATE
  14. CLOBETASOL PROPIONATE. [Concomitant]
     Active Substance: CLOBETASOL PROPIONATE

REACTIONS (1)
  - Middle insomnia [None]

NARRATIVE: CASE EVENT DATE: 201408
